FAERS Safety Report 12008750 (Version 1)
Quarter: 2016Q1

REPORT INFORMATION
  Report Type: Report from Study
  Country: US (occurrence: US)
  Receive Date: 20160205
  Receipt Date: 20160205
  Transmission Date: 20160526
  Serious: No
  Sender: FDA-Public Use
  Company Number: US-ABBVIE-15K-163-1445294-00

PATIENT
  Age: 51 Year
  Sex: Female

DRUGS (2)
  1. HUMIRA [Suspect]
     Active Substance: ADALIMUMAB
     Indication: RHEUMATOID ARTHRITIS
     Route: 065
     Dates: start: 20150519
  2. HUMIRA [Suspect]
     Active Substance: ADALIMUMAB
     Route: 065
     Dates: start: 20150803

REACTIONS (4)
  - Drug dose omission [Unknown]
  - Wrong technique in product usage process [Unknown]
  - Road traffic accident [Unknown]
  - Pain [Unknown]

NARRATIVE: CASE EVENT DATE: 2015
